FAERS Safety Report 14498941 (Version 2)
Quarter: 2018Q2

REPORT INFORMATION
  Report Type: Spontaneous
  Country: US (occurrence: US)
  Receive Date: 20180207
  Receipt Date: 20180504
  Transmission Date: 20180711
  Serious: Yes (Other)
  Sender: FDA-Public Use
  Company Number: US-PFIZER INC-2018045249

PATIENT
  Age: 83 Year
  Sex: Male
  Weight: 69 kg

DRUGS (18)
  1. CARDURA [Suspect]
     Active Substance: DOXAZOSIN MESYLATE
     Indication: BLOOD PRESSURE ABNORMAL
     Dosage: 1 MG, 1X/DAY
     Route: 048
     Dates: start: 2000
  2. DIOVAN HCT [Concomitant]
     Active Substance: HYDROCHLOROTHIAZIDE\VALSARTAN
     Indication: BLOOD PRESSURE ABNORMAL
     Dosage: UNK UNK, 1X/DAY (VALSARTAN: 160MG)/(HYDROCHLOROTHIAZIDE: 12.5 MG ) (MORNING)
     Route: 048
     Dates: start: 199902
  3. CALCIUM CITRATE + D [Concomitant]
     Indication: OSTEOPOROSIS
     Dosage: 2400 MG, 1X/DAY [TWO TABLETS AFTER BREAKFAST]
     Route: 048
  4. ZANTAC [Concomitant]
     Active Substance: RANITIDINE HYDROCHLORIDE
     Indication: GASTROOESOPHAGEAL REFLUX DISEASE
     Dosage: 150 MG, 1X/DAY (BEFORE BEDTIME)
     Route: 048
     Dates: start: 20160623
  5. ASPIRIN. [Concomitant]
     Active Substance: ASPIRIN
     Indication: TRANSIENT ISCHAEMIC ATTACK
     Dosage: 325 MG, 1X/DAY
     Route: 048
     Dates: start: 199103
  6. VITAMIN C [Concomitant]
     Active Substance: ASCORBIC ACID
     Indication: VITAMIN C DEFICIENCY
     Dosage: 500 MG, 1X/DAY
     Route: 048
  7. CENTRUM SILVER MEN 50+ [Concomitant]
     Indication: SUPPLEMENTATION THERAPY
     Dosage: 1 DF, 1X/DAY (AFTER DINNER)
     Route: 048
  8. ACETAMINOPHEN. [Concomitant]
     Active Substance: ACETAMINOPHEN
     Indication: OSTEOARTHRITIS
     Dosage: 500 MG, CYCLIC (1-2 PER DAY)
     Route: 048
  9. PRAMIPEXOLE. [Concomitant]
     Active Substance: PRAMIPEXOLE
     Indication: RESTLESS LEGS SYNDROME
     Dosage: 0.125 MG, 1X/DAY [HALF TABLET BY MOUTH TWO HOURS BEFORE BEDTIME]
     Route: 048
     Dates: start: 20121019
  10. ACETAMINOPHEN. [Concomitant]
     Active Substance: ACETAMINOPHEN
     Indication: OSTEOPOROSIS
  11. NEXIUM [Concomitant]
     Active Substance: ESOMEPRAZOLE MAGNESIUM
     Indication: BARRETT^S OESOPHAGUS
     Dosage: 40 MG, 1X/DAY (ONE HOUR BEFORE DINNER)
     Route: 048
     Dates: start: 200605
  12. VITAMIN D [Concomitant]
     Active Substance: CHOLECALCIFEROL
     Indication: OSTEOPOROSIS
     Dosage: 1000 IU, 1X/DAY
     Route: 048
     Dates: start: 201309
  13. SYSTANE BALANCE [Concomitant]
     Active Substance: PROPYLENE GLYCOL
     Indication: DRY EYE
     Dosage: UNK UNK, 2X/DAY (1-2 DROPS IN EACH EYE)
     Route: 047
  14. CARDURA [Suspect]
     Active Substance: DOXAZOSIN MESYLATE
     Indication: PROSTATOMEGALY
     Dosage: 1 MG, 1X/DAY
     Route: 048
  15. NORVASC [Concomitant]
     Active Substance: AMLODIPINE BESYLATE
     Indication: BLOOD PRESSURE ABNORMAL
     Dosage: 5 MG, 1X/DAY (MORNING)
     Route: 048
     Dates: start: 199904
  16. PLAVIX [Concomitant]
     Active Substance: CLOPIDOGREL BISULFATE
     Indication: COAGULOPATHY
     Dosage: 75 MG, 1X/DAY (MORNING)
     Route: 048
     Dates: start: 19990221
  17. FLUTICASONE PROPIONATE. [Concomitant]
     Active Substance: FLUTICASONE PROPIONATE
     Indication: HYPERSENSITIVITY
     Dosage: UNK UNK, 1X/DAY (2 SPRAYS IN EACH NOSTRIL ONCE A DAY)
     Route: 045
     Dates: start: 201607
  18. OSTEO BI-FLEX TRIPLE STRENGTH WITH VITAMIN D [Concomitant]
     Indication: OSTEOPOROSIS
     Dosage: 1 DF, 2X/DAY
     Route: 048
     Dates: start: 201202

REACTIONS (2)
  - Jaw fracture [Recovering/Resolving]
  - Fall [Recovering/Resolving]

NARRATIVE: CASE EVENT DATE: 20180117
